FAERS Safety Report 15178997 (Version 1)
Quarter: 2018Q3

REPORT INFORMATION
  Report Type: Report from Study
  Country: None (occurrence: US)
  Receive Date: 20180723
  Receipt Date: 20180723
  Transmission Date: 20181010
  Serious: Yes (Other)
  Sender: FDA-Public Use
  Company Number: US-ABBVIE-16K-163-1618815-00

PATIENT
  Age: 62 Year
  Sex: Female

DRUGS (3)
  1. HUMIRA [Suspect]
     Active Substance: ADALIMUMAB
     Route: 058
  2. HUMIRA [Suspect]
     Active Substance: ADALIMUMAB
     Indication: PSORIATIC ARTHROPATHY
     Route: 058
     Dates: start: 20150727, end: 20150807
  3. HUMIRA [Suspect]
     Active Substance: ADALIMUMAB
     Indication: PSORIASIS
     Route: 058
     Dates: start: 20180328, end: 2018

REACTIONS (7)
  - Procedural complication [Unknown]
  - Back pain [Recovering/Resolving]
  - Cough [Unknown]
  - Pain in extremity [Unknown]
  - Psoriasis [Recovered/Resolved]
  - Intervertebral disc disorder [Unknown]
  - Fall [Unknown]

NARRATIVE: CASE EVENT DATE: 2015
